FAERS Safety Report 19746291 (Version 1)
Quarter: 2021Q3

REPORT INFORMATION
  Report Type: Spontaneous
  Country: NL (occurrence: NL)
  Receive Date: 20210825
  Receipt Date: 20210825
  Transmission Date: 20211014
  Serious: Yes (Hospitalization)
  Sender: FDA-Public Use
  Company Number: NL-MYLANLABS-2021M1054671

PATIENT
  Age: 22 Year
  Sex: Male
  Weight: 64.2 kg

DRUGS (5)
  1. PANTOPRAZOL                        /01263201/ [Concomitant]
     Active Substance: PANTOPRAZOLE
     Dosage: MAAGSAPRESISTENTE TABLET, 40 MG (MILLIGRAM)
  2. CARBASALAATCALCIUM [Concomitant]
     Active Substance: CARBASPIRIN CALCIUM
     Dosage: 100 MILLIGRAM, ZAKJE (POEDER)
  3. COLCHICINE. [Suspect]
     Active Substance: COLCHICINE
     Indication: PROPHYLAXIS
  4. COLCHICINE. [Suspect]
     Active Substance: COLCHICINE
     Indication: PERICARDITIS
     Dosage: 2 KEER PER DAG 1 STUK
     Dates: start: 20201229, end: 20210122
  5. CARBASALAATCALCIUM [Concomitant]
     Active Substance: CARBASPIRIN CALCIUM
     Dosage: 600 MILLIGRAM, ZAKJE (POEDER)

REACTIONS (1)
  - Hepatic enzyme increased [Recovered/Resolved]

NARRATIVE: CASE EVENT DATE: 20210120
